FAERS Safety Report 24239250 (Version 4)
Quarter: 2025Q4

REPORT INFORMATION
  Report Type: Other
  Country: US (occurrence: US)
  Receive Date: 20240822
  Receipt Date: 20251004
  Transmission Date: 20260118
  Serious: Yes (Hospitalization)
  Sender: TRAVERE THERAPEUTICS
  Company Number: US-TRAVERE-2024TVT00809

PATIENT
  Age: 68 Year
  Sex: Female

DRUGS (4)
  1. FILSPARI [Suspect]
     Active Substance: SPARSENTAN
     Indication: IgA nephropathy
     Route: 048
  2. FILSPARI [Suspect]
     Active Substance: SPARSENTAN
     Indication: Essential hypertension
     Route: 048
     Dates: start: 20240724
  3. FILSPARI [Suspect]
     Active Substance: SPARSENTAN
     Indication: Renal transplant
  4. FILSPARI [Suspect]
     Active Substance: SPARSENTAN
     Indication: Blood glucose abnormal

REACTIONS (5)
  - Fluid retention [Unknown]
  - Swelling face [Recovered/Resolved]
  - Illness [Recovering/Resolving]
  - Swelling [Unknown]
  - Pain in extremity [Unknown]

NARRATIVE: CASE EVENT DATE: 20240101
